FAERS Safety Report 8769016 (Version 3)
Quarter: 2012Q4

REPORT INFORMATION
  Report Type: 
  Country: US (occurrence: US)
  Receive Date: 20120904
  Receipt Date: 20121115
  Transmission Date: 20130627
  Serious: Yes (Death)
  Sender: FDA-Public Use
  Company Number: US-CELGENEUS-163-21880-12083345

PATIENT
  Age: 63 Year
  Sex: Female

DRUGS (2)
  1. REVLIMID [Suspect]
     Indication: NODULAR LYMPHOMA
     Dosage: 10 Milligram
     Route: 048
     Dates: start: 20110326, end: 20110328
  2. REVLIMID [Suspect]
     Indication: NON-HODGKIN^S LYMPHOMA
     Dosage: 3.75 Milligram
     Route: 048
     Dates: start: 20110405, end: 20110708

REACTIONS (2)
  - B-cell lymphoma [Fatal]
  - Rash [Recovered/Resolved]
